FAERS Safety Report 22176841 (Version 1)
Quarter: 2023Q2

REPORT INFORMATION
  Report Type: Report from Study
  Country: US (occurrence: US)
  Receive Date: 20230405
  Receipt Date: 20230405
  Transmission Date: 20230722
  Serious: No
  Sender: FDA-Public Use
  Company Number: US-BEH-2023155228

PATIENT
  Age: 48 Year
  Sex: Female
  Weight: 81.633 kg

DRUGS (2)
  1. HIZENTRA [Suspect]
     Active Substance: HUMAN IMMUNOGLOBULIN G
     Indication: Chronic inflammatory demyelinating polyradiculoneuropathy
     Dosage: 33 GRAM, QW
     Route: 058
     Dates: start: 20230129
  2. HIZENTRA [Suspect]
     Active Substance: HUMAN IMMUNOGLOBULIN G
     Indication: Chronic inflammatory demyelinating polyradiculoneuropathy
     Dosage: 40 GRAM
     Route: 058

REACTIONS (13)
  - Migraine [Recovering/Resolving]
  - Infusion site pain [Recovered/Resolved]
  - Fine motor skill dysfunction [Unknown]
  - Hypoaesthesia [Unknown]
  - Hypoaesthesia [Unknown]
  - Paraesthesia [Unknown]
  - Migraine [Unknown]
  - Peroneal nerve palsy [Unknown]
  - No adverse event [Unknown]
  - Inadequate aseptic technique in use of product [Unknown]
  - Intercepted product preparation error [Unknown]
  - No adverse event [Unknown]
  - Insurance issue [Unknown]

NARRATIVE: CASE EVENT DATE: 20230131
